FAERS Safety Report 13271655 (Version 1)
Quarter: 2017Q1

REPORT INFORMATION
  Report Type: Spontaneous
  Country: FR (occurrence: FR)
  Receive Date: 20170227
  Receipt Date: 20170227
  Transmission Date: 20170428
  Serious: Yes (Hospitalization, Congenital Anomaly, Other)
  Sender: FDA-Public Use
  Company Number: FR-BRISTOL-MYERS SQUIBB COMPANY-BMS-2017-014513

PATIENT
  Age: 0 Day
  Sex: Female
  Weight: 3.53 kg

DRUGS (2)
  1. ABILIFY [Suspect]
     Active Substance: ARIPIPRAZOLE
     Indication: PRODUCT USED FOR UNKNOWN INDICATION
     Dosage: UNK
     Route: 064
     Dates: end: 201508
  2. HALDOL [Suspect]
     Active Substance: HALOPERIDOL
     Indication: PRODUCT USED FOR UNKNOWN INDICATION
     Dosage: 1 DF, QMO
     Route: 064
     Dates: start: 201508

REACTIONS (5)
  - Pulmonary arterial hypertension [Recovered/Resolved]
  - Foetal exposure during pregnancy [Unknown]
  - Atrioventricular septal defect [Unknown]
  - Cardiac murmur [Unknown]
  - Macrosomia [Unknown]

NARRATIVE: CASE EVENT DATE: 20151113
